FAERS Safety Report 7527647-8 (Version None)
Quarter: 2011Q2

REPORT INFORMATION
  Report Type: 
  Country: None (occurrence: None)
  Receive Date: 20110607
  Receipt Date: 20090928
  Transmission Date: 20111010
  Serious: Yes (Other)
  Sender: FDA-Public Use
  Company Number: DE-BAYER-2010-000506

PATIENT
  Age: 42 Year
  Sex: Female

DRUGS (1)
  1. INTERFERON BETA-1B [Suspect]
     Indication: MULTIPLE SCLEROSIS
     Dosage: 250 ?G/ML, UNK
     Route: 058
     Dates: start: 20090706

REACTIONS (7)
  - HAEMATOMA [None]
  - COUGH [None]
  - MOTOR DYSFUNCTION [None]
  - FALL [None]
  - CARDIOVASCULAR DISORDER [None]
  - NASOPHARYNGITIS [None]
  - MULTIPLE SCLEROSIS RELAPSE [None]
